FAERS Safety Report 4644612-9 (Version None)
Quarter: 2005Q2

REPORT INFORMATION
  Report Type: 
  Country: None (occurrence: None)
  Receive Date: 20050426
  Receipt Date: 20050415
  Transmission Date: 20051028
  Serious: Yes (Disabling)
  Sender: FDA-Public Use
  Company Number: PHRM2005FR01314

PATIENT
  Age: 53 Year
  Sex: Female
  Weight: 44 kg

DRUGS (2)
  1. ESTRADIOL [Suspect]
     Indication: PREMATURE MENOPAUSE
     Dosage: 50 UG, QD
     Route: 062
     Dates: start: 19890101
  2. SURGESTONE [Suspect]
     Indication: PREMATURE MENOPAUSE
     Dosage: 0.25 MG, QD
     Route: 048
     Dates: start: 19890101

REACTIONS (2)
  - INTRACRANIAL PRESSURE INCREASED [None]
  - VISUAL ACUITY REDUCED [None]
